FAERS Safety Report 7400084-2 (Version None)
Quarter: 2011Q2

REPORT INFORMATION
  Report Type: 
  Country: None (occurrence: None)
  Receive Date: 20110407
  Receipt Date: 20100419
  Transmission Date: 20111010
  Serious: Yes (Other)
  Sender: FDA-Public Use
  Company Number: PHHY2010DE90845

PATIENT
  Sex: Female

DRUGS (2)
  1. EXTAVIA [Suspect]
     Route: 058
     Dates: start: 20100323, end: 20100723
  2. EXTAVIA [Suspect]
     Route: 058

REACTIONS (6)
  - CONTUSION [None]
  - INJECTION SITE REACTION [None]
  - RASH PUSTULAR [None]
  - OBESITY [None]
  - CONNECTIVE TISSUE DISORDER [None]
  - INJECTION SITE IRRITATION [None]
